FAERS Safety Report 7725146-1 (Version None)
Quarter: 2011Q3

REPORT INFORMATION
  Report Type: 
  Country: None (occurrence: None)
  Receive Date: 20110901
  Receipt Date: 20110823
  Transmission Date: 20111222
  Serious: Yes (Life-Threatening)
  Sender: FDA-Public Use
  Company Number: BR-US-EMD SERONO, INC.-7079167

PATIENT
  Sex: Male

DRUGS (9)
  1. NAPRIX A [Concomitant]
  2. SIMVASTATIN [Concomitant]
  3. MANTIDAN [Concomitant]
  4. METFORMIN [Concomitant]
  5. CLONAZEPAM [Concomitant]
  6. EXODUS [Concomitant]
  7. SOLMAGIN CARDIO 325 [Concomitant]
  8. PAMELOR [Concomitant]
  9. REBIF [Suspect]
     Indication: RELAPSING-REMITTING MULTIPLE SCLEROSIS
     Dates: start: 20081117, end: 20110601

REACTIONS (1)
  - LUNG NEOPLASM MALIGNANT [None]
